FAERS Safety Report 6985025-4 (Version None)
Quarter: 2010Q3

REPORT INFORMATION
  Report Type: 
  Country: None (occurrence: None)
  Receive Date: 20100915
  Receipt Date: 20100903
  Transmission Date: 20110219
  Serious: Yes (Hospitalization, Other)
  Sender: FDA-Public Use
  Company Number: PHHY2010BR58473

PATIENT
  Sex: Female
  Weight: 90 kg

DRUGS (6)
  1. DIOVAN HCT [Suspect]
     Indication: HYPERTENSION
     Dosage: 160/2.5 MG, BID
     Route: 048
     Dates: start: 20100301, end: 20100508
  2. ROXFLAN [Concomitant]
     Indication: HYPERTENSION
     Dosage: 1 TABLET DAILY
     Route: 048
  3. APRESOLINE [Concomitant]
     Indication: FLUID RETENTION
     Dosage: 1 TABLET DAILY
     Route: 048
  4. OMEPRAZOLE [Concomitant]
     Indication: ABDOMINAL PAIN UPPER
     Dosage: 1 TABLET DAILY
     Route: 048
  5. VASOGARD [Concomitant]
     Dosage: 50 MG, BID
     Route: 048
  6. CELEBRA ^PFIZER^ [Concomitant]
     Dosage: 1 TABLET DAILY
     Route: 048

REACTIONS (7)
  - BLOOD PRESSURE INADEQUATELY CONTROLLED [None]
  - BLOOD PRESSURE INCREASED [None]
  - CEREBROVASCULAR ACCIDENT [None]
  - DRUG INEFFECTIVE [None]
  - DYSARTHRIA [None]
  - MEMORY IMPAIRMENT [None]
  - SPEECH DISORDER [None]
